FAERS Safety Report 5644162-7 (Version None)
Quarter: 2008Q1

REPORT INFORMATION
  Report Type: 
  Country: None (occurrence: None)
  Receive Date: 20080227
  Receipt Date: 20080211
  Transmission Date: 20080703
  Serious: Yes (Other)
  Sender: FDA-Public Use
  Company Number: 2008S1000076

PATIENT
  Age: 19 Day
  Weight: 3.1 kg

DRUGS (7)
  1. CUBICIN [Suspect]
     Indication: STAPHYLOCOCCAL INFECTION
  2. PROSTAGLANDIN E1 [Concomitant]
  3. VANCOMYCIN [Concomitant]
  4. CEFEPIME [Concomitant]
  5. GENTAMICIN [Concomitant]
  6. RIFAMPIN [Concomitant]
  7. LINEZOLID [Concomitant]

REACTIONS (2)
  - DRUG INEFFECTIVE [None]
  - OFF LABEL USE [None]
